FAERS Safety Report 21439020 (Version 7)
Quarter: 2023Q1

REPORT INFORMATION
  Report Type: Report from Study
  Country: US (occurrence: US)
  Receive Date: 20221011
  Receipt Date: 20230106
  Transmission Date: 20230418
  Serious: Yes (Other)
  Sender: FDA-Public Use
  Company Number: US-002147023-NVSC2022US228969

PATIENT
  Age: 64 Year
  Sex: Male
  Weight: 190 kg

DRUGS (2)
  1. COSENTYX [Suspect]
     Active Substance: SECUKINUMAB
     Indication: Psoriasis
     Dosage: 300 MG, QMO
     Route: 058
  2. COSENTYX [Suspect]
     Active Substance: SECUKINUMAB
     Dosage: UNK, Q4W
     Route: 058
     Dates: start: 20211213, end: 20221010

REACTIONS (1)
  - Cellulitis staphylococcal [Recovering/Resolving]

NARRATIVE: CASE EVENT DATE: 20220704
